FAERS Safety Report 8033748-0 (Version None)
Quarter: 2012Q1

REPORT INFORMATION
  Report Type: 
  Country: None (occurrence: None)
  Receive Date: 20120110
  Receipt Date: 20111117
  Transmission Date: 20120608
  Serious: Yes (Disabling)
  Sender: FDA-Public Use
  Company Number: DE-GLAXOSMITHKLINE-D0073473A

PATIENT
  Sex: Female

DRUGS (2)
  1. FLUTICASONE PROPIONATE/SALMETEROL [Suspect]
     Indication: ASTHMA
     Route: 055
  2. TROMPHYLLIN RETARD [Concomitant]
     Indication: DYSPNOEA
     Dosage: 30MG TWICE PER DAY
     Route: 048

REACTIONS (2)
  - DRY MOUTH [None]
  - TOOTH DISCOLOURATION [None]
